FAERS Safety Report 5235163-1 (Version None)
Quarter: 2007Q1

REPORT INFORMATION
  Report Type: 
  Country: None (occurrence: None)
  Receive Date: 20070207
  Receipt Date: 20070202
  Transmission Date: 20070707
  Serious: Yes (Other)
  Sender: FDA-Public Use
  Company Number: 2006-02213

PATIENT
  Age: 55 Year
  Sex: Male

DRUGS (3)
  1. VELCADE [Suspect]
     Indication: MULTIPLE MYELOMA
     Dates: start: 20060612, end: 20061001
  2. VALACYCLOVIR HCL [Concomitant]
  3. DURAGESIC-100 [Concomitant]

REACTIONS (2)
  - ERECTILE DYSFUNCTION [None]
  - STEM CELL TRANSPLANT [None]
